FAERS Safety Report 6558053-0 (Version None)
Quarter: 2010Q1

REPORT INFORMATION
  Report Type: 
  Country: None (occurrence: None)
  Receive Date: 20100129
  Receipt Date: 20100120
  Transmission Date: 20100710
  Serious: Yes (Hospitalization)
  Sender: FDA-Public Use
  Company Number: US-SANOFI-AVENTIS-2009SA001391

PATIENT
  Age: 56 Year
  Sex: Female

DRUGS (2)
  1. SOLOSTAR [Suspect]
     Indication: TYPE 2 DIABETES MELLITUS
     Dates: start: 20081001
  2. LANTUS [Suspect]
     Indication: TYPE 2 DIABETES MELLITUS
     Dosage: DOSE:50 UNIT(S)
     Route: 058
     Dates: start: 20081001

REACTIONS (6)
  - BRONCHITIS [None]
  - HYPERGLYCAEMIA [None]
  - HYPOTENSION [None]
  - INFECTION [None]
  - PNEUMONIA [None]
  - STREPTOCOCCAL INFECTION [None]
